FAERS Safety Report 24715376 (Version 1)
Quarter: 2024Q4

REPORT INFORMATION
  Report Type: Spontaneous
  Country: US (occurrence: US)
  Receive Date: 20241210
  Receipt Date: 20241210
  Transmission Date: 20250114
  Serious: No
  Sender: SANOFI AVENTIS
  Company Number: US-SANOFI-02321669

PATIENT
  Age: 63 Year
  Sex: Female

DRUGS (2)
  1. TOUJEO MAX [Suspect]
     Active Substance: INSULIN GLARGINE
     Indication: Diabetes mellitus
     Dosage: 18 IU, QD
     Dates: start: 2023
  2. ASPIRIN [Suspect]
     Active Substance: ASPIRIN
     Dosage: UNK, QD

REACTIONS (2)
  - Blood glucose increased [Unknown]
  - Pruritus [Unknown]
